FAERS Safety Report 7639904-5 (Version None)
Quarter: 2011Q3

REPORT INFORMATION
  Report Type: 
  Country: None (occurrence: None)
  Receive Date: 20110727
  Receipt Date: 20110714
  Transmission Date: 20111222
  Serious: Yes (Other)
  Sender: FDA-Public Use
  Company Number: TW-MYLANLABS-2011S1015146

PATIENT
  Age: 58 Year
  Sex: Female

DRUGS (4)
  1. SULPIRIDE [Suspect]
     Dosage: 31 TABLETS OF SULPIRIDE (100MG)
     Route: 065
  2. BUSPIRONE HCL [Suspect]
     Dosage: 30 TABLETS OF BUSPIRONE (10MG)
     Route: 065
  3. DULOXETINE HYDROCHLORIDE [Suspect]
     Dosage: 28 CAPSULES OF DULOXETINE (30MG)
     Route: 065
  4. LORAZEPAM [Suspect]
     Dosage: 56 TABLETS OF LORAZEPAM (0.5MG)
     Route: 065

REACTIONS (8)
  - BEZOAR [None]
  - CHILLS [None]
  - COMA [None]
  - NYSTAGMUS [None]
  - OESOPHAGEAL OBSTRUCTION [None]
  - HYPERREFLEXIA [None]
  - HYPERHIDROSIS [None]
  - MYOCLONUS [None]
